FAERS Safety Report 17110603 (Version 3)
Quarter: 2020Q1

REPORT INFORMATION
  Report Type: Spontaneous
  Country: US (occurrence: US)
  Receive Date: 20191204
  Receipt Date: 20200305
  Transmission Date: 20200409
  Serious: Yes (Other)
  Sender: FDA-Public Use
  Company Number: US-PFIZER INC-2019522569

PATIENT
  Age: 70 Year
  Sex: Female
  Weight: 104.31 kg

DRUGS (22)
  1. CALCIUM [Concomitant]
     Active Substance: CALCIUM
     Dosage: 1 DF, DAILY
     Route: 048
  2. ESTRACE [Concomitant]
     Active Substance: ESTRADIOL
     Dosage: 0.5 MG, DAILY
     Route: 048
  3. ZANAFLEX [Concomitant]
     Active Substance: TIZANIDINE HYDROCHLORIDE
     Dosage: 4 MG, AS NEEDED [EVERY 8 HOURS AS NEEDED]
     Route: 048
  4. MACROBID [Concomitant]
     Active Substance: NITROFURANTOIN\NITROFURANTOIN MONOHYDRATE
     Indication: URINARY TRACT INFECTION
     Dosage: 100 MG, AS NEEDED (1 TAB PO BID X 5 DAYS PRN UTI)
  5. MYCOSTATIN [Concomitant]
     Active Substance: NYSTATIN
     Dosage: UNK (APPLY TOPICLLY TO AFFECTED AREA 2 TIMES A DAY)
  6. CELEXA [Concomitant]
     Active Substance: CITALOPRAM HYDROBROMIDE
     Dosage: 20 MG, DAILY
     Route: 048
  7. ESTRACE [Concomitant]
     Active Substance: ESTRADIOL
     Dosage: UNK [1 GM NIGHTLYINTO THE VAGINA AND ON THE URETHRA FOR 2 WEEKS THEN 1 GM TWICE A WEEK]
     Route: 067
  8. PROTONIX [Concomitant]
     Active Substance: PANTOPRAZOLE SODIUM
     Dosage: 40 MG, 2X/DAY
     Route: 048
  9. DESYREL [Concomitant]
     Active Substance: TRAZODONE HYDROCHLORIDE
     Dosage: 100 MG, 1X/DAY (TAKE 1 TABLET (100MG) BY MOUTH AT BEDTIME.)
     Route: 048
  10. FOLVITE [Concomitant]
     Active Substance: FOLIC ACID
     Dosage: 5 MG, 1X/DAY (TAKE 5 TABLETS BY MOUTH ONCE DAILY)
     Route: 048
  11. ARMOUR THYROID [Concomitant]
     Active Substance: THYROID, PORCINE
     Dosage: 60 MG, DAILY
     Route: 048
  12. ULTRAM [Concomitant]
     Active Substance: TRAMADOL HYDROCHLORIDE
     Indication: PAIN
     Dosage: 50 MG, AS NEEDED
     Route: 048
  13. ASPIRIN. [Concomitant]
     Active Substance: ASPIRIN
     Dosage: 81 MG, DAILY
     Route: 048
  14. MOBIC [Concomitant]
     Active Substance: MELOXICAM
     Dosage: 15 MG, DAILY
     Route: 048
  15. MEDROL [Concomitant]
     Active Substance: METHYLPREDNISOLONE
     Dosage: UNK
  16. MULTIVITALITY ESSENTIAL [Concomitant]
     Dosage: 2 DF, DAILY
     Route: 048
  17. BACTRIM DS [Concomitant]
     Active Substance: SULFAMETHOXAZOLE\TRIMETHOPRIM
     Dosage: 160 MG, 2X/DAY
     Route: 048
  18. VITAMIN D3 [Concomitant]
     Active Substance: CHOLECALCIFEROL
     Indication: VITAMIN D DEFICIENCY
     Dosage: 5000 IU, DAILY
     Route: 048
  19. XELJANZ [Suspect]
     Active Substance: TOFACITINIB CITRATE
     Indication: RHEUMATOID ARTHRITIS
     Dosage: 5 MG, BID (TWICE A DAY)
  20. TYLENOL [Concomitant]
     Active Substance: ACETAMINOPHEN
     Dosage: UNK (TAKE 1000 MG BY MOUTH EVERY 8 HOURS.)
     Route: 048
  21. NEURONTIN [Concomitant]
     Active Substance: GABAPENTIN
     Dosage: 500 MG, UNK (TAKE 2 TABLETS QAM, 3 TABLETS QPM)
  22. METHOTREXATE. [Concomitant]
     Active Substance: METHOTREXATE
     Dosage: 15 MG, WEEKLY
     Route: 048

REACTIONS (3)
  - Nasopharyngitis [Unknown]
  - Nerve compression [Not Recovered/Not Resolved]
  - Arthritis infective [Unknown]

NARRATIVE: CASE EVENT DATE: 20200110
